FAERS Safety Report 8614575 (Version 2)
Quarter: 2013Q2

REPORT INFORMATION
  Report Type: Spontaneous
  Country: US (occurrence: US)
  Receive Date: 20120614
  Receipt Date: 20130617
  Transmission Date: 20140414
  Serious: Yes (Disabling, Other)
  Sender: FDA-Public Use
  Company Number: US-ASTRAZENECA-2012SE35663

PATIENT
  Age: 41 Year
  Sex: Male

DRUGS (11)
  1. NEXIUM [Suspect]
     Indication: GASTROOESOPHAGEAL REFLUX DISEASE
     Route: 048
     Dates: start: 2007
  2. NEXIUM [Suspect]
     Indication: GASTROOESOPHAGEAL REFLUX DISEASE
     Route: 048
  3. MYLANTA [Concomitant]
     Dates: start: 2008
  4. GLYBURIDE [Concomitant]
  5. PREDNISONE [Concomitant]
  6. METFORMINE [Concomitant]
  7. VERAPAMIL [Concomitant]
  8. ENALAPRIL MALATE [Concomitant]
  9. NOVOLOG [Concomitant]
  10. LANTUS [Concomitant]
     Dosage: 30 UNITS AT BED TIME
  11. ALBUTEROL [Concomitant]
     Dosage: 90 MCG 1 AS NEED

REACTIONS (11)
  - Hip fracture [Unknown]
  - Osteoporosis [Unknown]
  - Sarcoidosis [Unknown]
  - Multiple fractures [Unknown]
  - Bone pain [Unknown]
  - Osteogenesis imperfecta [Unknown]
  - Chronic obstructive pulmonary disease [Unknown]
  - Diabetes mellitus [Unknown]
  - Bone density decreased [Unknown]
  - Bone disorder [Unknown]
  - Depression [Unknown]
